FAERS Safety Report 22025996 (Version 6)
Quarter: 2024Q4

REPORT INFORMATION
  Report Type: Spontaneous
  Country: US (occurrence: US)
  Receive Date: 20230223
  Receipt Date: 20241127
  Transmission Date: 20250114
  Serious: No
  Sender: ROCHE
  Company Number: US-ROCHE-3134390

PATIENT
  Age: 45 Year
  Sex: Female
  Weight: 55.34 kg

DRUGS (12)
  1. XOLAIR PFS [Suspect]
     Active Substance: OMALIZUMAB
     Indication: Asthma
     Dosage: STRENGTH: 150MG/ML
     Route: 058
     Dates: start: 20190813
  2. XOLAIR PFS [Suspect]
     Active Substance: OMALIZUMAB
     Indication: Idiopathic urticaria
     Dosage: STRENGTH: 150MG/ML
     Route: 058
     Dates: start: 201807
  3. XOLAIR PFS [Suspect]
     Active Substance: OMALIZUMAB
     Indication: Immune system disorder
     Dosage: STRENGTH: 150MG/ML
     Route: 058
     Dates: start: 202205
  4. XOLAIR PFS [Suspect]
     Active Substance: OMALIZUMAB
     Indication: Migraine without aura
     Dosage: STRENGTH: 150MG/ML
     Route: 058
     Dates: start: 201812
  5. XOLAIR PFS [Suspect]
     Active Substance: OMALIZUMAB
     Dosage: STRENGTH: 150MG/ML
     Route: 058
     Dates: start: 20180719
  6. XOLAIR PFS [Suspect]
     Active Substance: OMALIZUMAB
     Dosage: STRENGTH: 150MG/ML
     Route: 058
     Dates: start: 201912
  7. TAKHZYRO [Suspect]
     Active Substance: LANADELUMAB-FLYO
     Indication: Immune system disorder
     Route: 058
     Dates: start: 20220422
  8. TAKHZYRO [Suspect]
     Active Substance: LANADELUMAB-FLYO
     Indication: Asthma
     Route: 058
     Dates: start: 202207
  9. TAKHZYRO [Suspect]
     Active Substance: LANADELUMAB-FLYO
     Indication: Idiopathic urticaria
     Route: 058
     Dates: start: 20220721
  10. TAKHZYRO [Suspect]
     Active Substance: LANADELUMAB-FLYO
     Route: 058
     Dates: start: 20220725
  11. TAKHZYRO [Suspect]
     Active Substance: LANADELUMAB-FLYO
     Route: 058
     Dates: start: 20220726
  12. TAKHZYRO [Suspect]
     Active Substance: LANADELUMAB-FLYO
     Dosage: ONGOING
     Route: 058
     Dates: start: 20221007

REACTIONS (12)
  - Gastrointestinal disorder [Unknown]
  - Hereditary angioedema [Recovered/Resolved]
  - Gastrointestinal disorder [Recovered/Resolved]
  - Stress [Unknown]
  - Pruritus [Unknown]
  - Injection site erythema [Unknown]
  - Inflammation [Recovered/Resolved]
  - Abdominal distension [Recovered/Resolved]
  - Abdominal distension [Recovered/Resolved]
  - Swelling face [Unknown]
  - Lip swelling [Unknown]
  - Weight decreased [Unknown]

NARRATIVE: CASE EVENT DATE: 20220701
